FAERS Safety Report 23575652 (Version 2)
Quarter: 2024Q1

REPORT INFORMATION
  Report Type: Spontaneous
  Country: US (occurrence: US)
  Receive Date: 20240228
  Receipt Date: 20240326
  Transmission Date: 20240409
  Serious: Yes (Other)
  Sender: FDA-Public Use
  Company Number: US-BAYER-2024A029348

PATIENT
  Age: 41 Year
  Sex: Male

DRUGS (3)
  1. KOVALTRY [Suspect]
     Active Substance: ANTIHEMOPHILIC FACTOR, HUMAN RECOMBINANT
     Indication: Factor VIII deficiency
     Dosage: INFUSE 2000 UNITS (+/-10%) EVERY OTHER DAY AND DAILY AS NEEDED
  2. KOVALTRY [Suspect]
     Active Substance: ANTIHEMOPHILIC FACTOR, HUMAN RECOMBINANT
     Indication: Factor VIII deficiency
     Dosage: 5 DF
     Dates: start: 20240208, end: 20240208
  3. KOVALTRY [Suspect]
     Active Substance: ANTIHEMOPHILIC FACTOR, HUMAN RECOMBINANT
     Indication: Factor VIII deficiency
     Dosage: 5 DOSES
     Dates: start: 20240313, end: 20240313

REACTIONS (2)
  - Haemorrhage [Not Recovered/Not Resolved]
  - Haemorrhage [None]

NARRATIVE: CASE EVENT DATE: 20240208
